FAERS Safety Report 8010121-2 (Version None)
Quarter: 2011Q4

REPORT INFORMATION
  Report Type: 
  Country: None (occurrence: None)
  Receive Date: 20111228
  Receipt Date: 20111219
  Transmission Date: 20120403
  Serious: Yes (Other)
  Sender: FDA-Public Use
  Company Number: US-BAYER-2011-122142

PATIENT
  Sex: Female

DRUGS (1)
  1. MIRENA [Suspect]
     Dosage: 20 ?G/D, UNK
     Route: 015
     Dates: start: 20111212

REACTIONS (4)
  - VAGINAL HAEMORRHAGE [None]
  - ACNE [None]
  - ABDOMINAL DISTENSION [None]
  - GENITAL HAEMORRHAGE [None]
